FAERS Safety Report 5900889-0 (Version None)
Quarter: 2008Q3

REPORT INFORMATION
  Report Type: 
  Country: None (occurrence: None)
  Receive Date: 20080925
  Receipt Date: 20080915
  Transmission Date: 20090109
  Serious: Yes (Disabling, Other)
  Sender: FDA-Public Use
  Company Number: US024549

PATIENT
  Age: 65 Year
  Sex: Male
  Weight: 75 kg

DRUGS (2)
  1. TRISENOX [Suspect]
     Indication: ACUTE PROMYELOCYTIC LEUKAEMIA
     Dosage: 0.25 MG/KG INTRAVENOUS DRIP; 0.3 MG/KG INTRAVENOUS DRIP
     Route: 041
     Dates: start: 20080201
  2. RAMIPRIL [Concomitant]

REACTIONS (1)
  - MYELODYSPLASTIC SYNDROME [None]
